FAERS Safety Report 5396739-4 (Version None)
Quarter: 2007Q3

REPORT INFORMATION
  Report Type: 
  Country: None (occurrence: None)
  Receive Date: 20070725
  Receipt Date: 20070602
  Transmission Date: 20080115
  Serious: Yes (Other)
  Sender: FDA-Public Use
  Company Number: US-PURDUE-USA_2007_0028344

PATIENT
  Sex: Female

DRUGS (1)
  1. OXYCONTIN [Suspect]
     Indication: SICKLE CELL ANAEMIA
     Dates: start: 19970101, end: 19980101

REACTIONS (1)
  - CEREBROVASCULAR ACCIDENT [None]
